FAERS Safety Report 10529370 (Version 1)
Quarter: 2014Q4

REPORT INFORMATION
  Report Type: Spontaneous
  Country: US (occurrence: US)
  Receive Date: 20141021
  Receipt Date: 20141021
  Transmission Date: 20150528
  Serious: No
  Sender: FDA-Public Use
  Company Number: US-GILEAD-2014-0118689

PATIENT
  Age: 57 Year
  Sex: Female

DRUGS (6)
  1. ORENITRAM [Concomitant]
     Active Substance: TREPROSTINIL
  2. REVATIO [Concomitant]
     Active Substance: SILDENAFIL CITRATE
  3. TYVASO [Concomitant]
     Active Substance: TREPROSTINIL
  4. LETAIRIS [Suspect]
     Active Substance: AMBRISENTAN
     Indication: PRODUCT USED FOR UNKNOWN INDICATION
     Dosage: 10 MG, QD
     Route: 065
     Dates: start: 20121211
  5. ZITHROMAX [Concomitant]
     Active Substance: AZITHROMYCIN DIHYDRATE
  6. IMODIUM [Concomitant]
     Active Substance: LOPERAMIDE HYDROCHLORIDE

REACTIONS (1)
  - Diarrhoea [Unknown]
